FAERS Safety Report 10210309 (Version 1)
Quarter: 2014Q2

REPORT INFORMATION
  Report Type: Spontaneous
  Country: BR (occurrence: BR)
  Receive Date: 20140602
  Receipt Date: 20140602
  Transmission Date: 20141212
  Serious: Yes (Other)
  Sender: FDA-Public Use
  Company Number: BR-SA-2014SA067023

PATIENT
  Sex: Male
  Weight: 70 kg

DRUGS (8)
  1. LANTUS [Suspect]
     Indication: TYPE 2 DIABETES MELLITUS
     Route: 058
     Dates: start: 2012
  2. CLIKSTAR [Concomitant]
     Indication: DEVICE THERAPY
  3. SIMVASTATIN [Concomitant]
     Indication: BLOOD CHOLESTEROL
     Route: 048
  4. MANIVASC [Concomitant]
     Indication: HYPERTENSION
     Route: 048
  5. ATENOLOL [Concomitant]
     Indication: HYPERTENSION
     Route: 048
  6. AAS INFANTIL [Concomitant]
     Route: 048
  7. GLIFAGE [Concomitant]
     Indication: TYPE 2 DIABETES MELLITUS
     Route: 048
  8. LOSARTAN [Concomitant]
     Indication: HYPERTENSION
     Route: 048

REACTIONS (2)
  - Tendon rupture [Recovered/Resolved]
  - Arthralgia [Recovered/Resolved]
